FAERS Safety Report 6533303-5 (Version None)
Quarter: 2010Q1

REPORT INFORMATION
  Report Type: 
  Country: None (occurrence: None)
  Receive Date: 20100111
  Receipt Date: 20100104
  Transmission Date: 20100710
  Serious: Yes (Hospitalization, Other)
  Sender: FDA-Public Use
  Company Number: ES-MERCK-0806ESP00009

PATIENT
  Age: 64 Year
  Sex: Female

DRUGS (17)
  1. FOSAMAX [Suspect]
     Indication: OSTEOPOROSIS
     Route: 048
     Dates: start: 19970401
  2. FOSAMAX [Suspect]
     Route: 048
     Dates: end: 20070301
  3. METHYLPREDNISOLONE [Concomitant]
     Indication: RHEUMATOID ARTHRITIS
     Route: 048
     Dates: start: 20060918
  4. METHYLPREDNISOLONE [Concomitant]
     Route: 048
     Dates: start: 20040706
  5. METHYLPREDNISOLONE [Concomitant]
     Route: 048
     Dates: start: 20030601
  6. CALCIUM CARBONATE [Concomitant]
     Route: 048
  7. GLYBURIDE [Concomitant]
     Indication: DIABETES MELLITUS
     Route: 065
     Dates: start: 19970404
  8. GLYBURIDE [Concomitant]
     Route: 065
     Dates: start: 20060101
  9. DICLOFENAC SODIUM [Concomitant]
     Route: 054
  10. METHOTREXATE [Concomitant]
     Indication: RHEUMATOID ARTHRITIS
     Route: 048
     Dates: start: 20040706
  11. METHOTREXATE [Concomitant]
     Route: 048
     Dates: start: 20060221
  12. METHOTREXATE [Concomitant]
     Route: 048
     Dates: start: 20060918
  13. METHOTREXATE [Concomitant]
     Route: 048
     Dates: end: 20090129
  14. METHOTREXATE [Concomitant]
     Route: 048
     Dates: start: 20030101
  15. MISOPROSTOL [Concomitant]
     Route: 065
     Dates: end: 20070101
  16. PANTOPRAZOLE [Concomitant]
     Route: 065
     Dates: start: 20070101
  17. LANSOPRAZOLE [Concomitant]
     Route: 065
     Dates: start: 20070101

REACTIONS (35)
  - ANXIETY [None]
  - ATROPHIC VULVOVAGINITIS [None]
  - BACK PAIN [None]
  - CATARACT [None]
  - CONJUNCTIVITIS [None]
  - CONSTIPATION [None]
  - CONTUSION [None]
  - DEPRESSION [None]
  - DIABETES MELLITUS [None]
  - DIZZINESS [None]
  - DRUG HYPERSENSITIVITY [None]
  - DRUG INEFFECTIVE [None]
  - EAR INFECTION [None]
  - GASTRITIS [None]
  - GASTROINTESTINAL DISORDER [None]
  - GENERAL SYMPTOM [None]
  - HYPERSENSITIVITY [None]
  - INSOMNIA [None]
  - KERATITIS [None]
  - METATARSALGIA [None]
  - NASOPHARYNGITIS [None]
  - OSTEONECROSIS [None]
  - PATHOLOGICAL FRACTURE [None]
  - PERIARTHRITIS [None]
  - POLYARTHRITIS [None]
  - RHEUMATOID ARTHRITIS [None]
  - RHINITIS [None]
  - SOMATOFORM DISORDER [None]
  - STRESS FRACTURE [None]
  - SUICIDAL IDEATION [None]
  - URINARY INCONTINENCE [None]
  - VARICOSE VEIN [None]
  - VARICOSE VEINS VULVAL [None]
  - VASCULAR SKIN DISORDER [None]
  - VERTIGO [None]
